FAERS Safety Report 7240315-5 (Version None)
Quarter: 2011Q1

REPORT INFORMATION
  Report Type: 
  Country: None (occurrence: None)
  Receive Date: 20110113
  Receipt Date: 20110106
  Transmission Date: 20110831
  Serious: Yes (Hospitalization)
  Sender: FDA-Public Use
  Company Number: 2010SP022921

PATIENT
  Age: 26 Year
  Sex: Female

DRUGS (1)
  1. PEGATRON (PEGYLATED INTERFERON ALFA-2B W/RIBAVIRIN [Suspect]
     Indication: HEPATITIS C
     Dates: start: 20100402

REACTIONS (6)
  - KIDNEY INFECTION [None]
  - INJECTION SITE PAIN [None]
  - SEPTIC EMBOLUS [None]
  - INJECTION SITE INFECTION [None]
  - INJECTION SITE ERYTHEMA [None]
  - INJECTION SITE SCAB [None]
